FAERS Safety Report 4612391-7 (Version None)
Quarter: 2005Q1

REPORT INFORMATION
  Report Type: 
  Country: None (occurrence: None)
  Receive Date: 20050316
  Receipt Date: 20050307
  Transmission Date: 20050727
  Serious: Yes (Hospitalization)
  Sender: FDA-Public Use
  Company Number: TAP2005Q00394

PATIENT
  Age: 65 Year
  Sex: Male
  Weight: 78.9259 kg

DRUGS (2)
  1. LUPRON DEPOT [Suspect]
     Indication: PROSTATE CANCER
     Dosage: 7.5 MG, ONCE, INTRAMUSCULAR
     Route: 030
     Dates: start: 20040428, end: 20040428
  2. CASODEX [Suspect]
     Indication: PROSTATE CANCER
     Dosage: 50 MG, 1 IN 1 D, ORAL
     Route: 048
     Dates: start: 20040428

REACTIONS (4)
  - COLITIS [None]
  - DIARRHOEA [None]
  - HAEMATOCRIT DECREASED [None]
  - HYPOKALAEMIA [None]
